FAERS Safety Report 13151400 (Version 1)
Quarter: 2017Q1

REPORT INFORMATION
  Report Type: Spontaneous
  Country: US (occurrence: US)
  Receive Date: 20170125
  Receipt Date: 20170125
  Transmission Date: 20170428
  Serious: No
  Sender: FDA-Public Use
  Company Number: US-KADMON PHARMACEUTICALS, LLC-KAD201510-003642

PATIENT
  Sex: Male

DRUGS (5)
  1. RIBAVIRIN. [Suspect]
     Active Substance: RIBAVIRIN
     Dosage: TABLET
     Route: 048
     Dates: start: 2014
  2. INTERFERON [Suspect]
     Active Substance: INTERFERON
  3. SOVALDI [Suspect]
     Active Substance: SOFOSBUVIR
     Dates: start: 2014
  4. RIBAVIRIN. [Suspect]
     Active Substance: RIBAVIRIN
     Dosage: TABLET
     Route: 048
     Dates: start: 1999, end: 2000
  5. RIBAVIRIN. [Suspect]
     Active Substance: RIBAVIRIN
     Indication: HEPATITIS C
     Dosage: TABLET
     Route: 048
     Dates: start: 1998

REACTIONS (3)
  - Drug ineffective [Unknown]
  - Viral load undetectable [Unknown]
  - Adverse drug reaction [Recovered/Resolved]

NARRATIVE: CASE EVENT DATE: 201503
